FAERS Safety Report 10073443 (Version 2)
Quarter: 2014Q2

REPORT INFORMATION
  Report Type: Spontaneous
  Country: US (occurrence: US)
  Receive Date: 20140411
  Receipt Date: 20140528
  Transmission Date: 20141212
  Serious: Yes (Other)
  Sender: FDA-Public Use
  Company Number: US-PFIZER INC-2014095907

PATIENT
  Sex: Male

DRUGS (1)
  1. BENEFIX [Suspect]
     Dosage: UNK

REACTIONS (2)
  - Haemorrhage [Unknown]
  - Coagulopathy [Unknown]
